FAERS Safety Report 5565878-7 (Version None)
Quarter: 2007Q4

REPORT INFORMATION
  Report Type: 
  Country: None (occurrence: None)
  Receive Date: 20071213
  Receipt Date: 20071128
  Transmission Date: 20080405
  Serious: Yes (Other)
  Sender: FDA-Public Use
  Company Number: 430022M07DEU

PATIENT

DRUGS (1)
  1. NOVANTRONE [Suspect]
     Dosage: INTRAVENOUS
     Route: 042

REACTIONS (1)
  - DEEP VEIN THROMBOSIS [None]
